FAERS Safety Report 13114028 (Version 1)
Quarter: 2017Q1

REPORT INFORMATION
  Report Type: Spontaneous
  Country: US (occurrence: US)
  Receive Date: 20170113
  Receipt Date: 20170113
  Transmission Date: 20170428
  Serious: Yes (Other)
  Sender: FDA-Public Use
  Company Number: US-JNJFOC-20170111039

PATIENT
  Age: 78 Year
  Sex: Male

DRUGS (3)
  1. ASPIRIN. [Concomitant]
     Active Substance: ASPIRIN
  2. IMBRUVICA [Suspect]
     Active Substance: IBRUTINIB
     Indication: CHRONIC LYMPHOCYTIC LEUKAEMIA
     Route: 065
     Dates: start: 201608
  3. IMBRUVICA [Suspect]
     Active Substance: IBRUTINIB
     Indication: B-CELL SMALL LYMPHOCYTIC LYMPHOMA
     Route: 065
     Dates: start: 201608

REACTIONS (7)
  - Occult blood [Unknown]
  - Contusion [Recovering/Resolving]
  - Iron deficiency anaemia [Unknown]
  - Ecchymosis [Unknown]
  - Dyspnoea [Unknown]
  - Chronic kidney disease [Unknown]
  - Fatigue [Unknown]

NARRATIVE: CASE EVENT DATE: 20161219
